FAERS Safety Report 23782278 (Version 1)
Quarter: 2024Q2

REPORT INFORMATION
  Report Type: Spontaneous
  Country: PT (occurrence: PT)
  Receive Date: 20240425
  Receipt Date: 20240425
  Transmission Date: 20240717
  Serious: Yes (Other)
  Sender: FDA-Public Use
  Company Number: PT-UCBSA-2024016564

PATIENT
  Sex: Male
  Weight: 2.87 kg

DRUGS (9)
  1. HYDROXYZINE [Suspect]
     Active Substance: HYDROXYZINE HYDROCHLORIDE
     Indication: Symptomatic treatment
     Dosage: UNK
     Route: 064
  2. DIPHENHYDRAMINE [Concomitant]
     Active Substance: DIPHENHYDRAMINE
     Indication: Symptomatic treatment
     Dosage: UNK
     Route: 064
  3. DALTEPARIN [Concomitant]
     Active Substance: DALTEPARIN
     Indication: Pelvic venous thrombosis
     Dosage: 12500 INTERNATIONAL UNIT, DAILY
     Route: 065
  4. DALTEPARIN [Concomitant]
     Active Substance: DALTEPARIN
     Dosage: 13200 INTERNATIONAL UNIT, ONCE A DAY
     Route: 064
  5. TINZAPARIN [Concomitant]
     Active Substance: TINZAPARIN
     Indication: Pelvic venous thrombosis
     Dosage: 1000 INTERNATIONAL UNIT, DAILY
     Route: 064
  6. ENOXAPARIN [Concomitant]
     Active Substance: ENOXAPARIN
     Indication: Pelvic venous thrombosis
     Dosage: 140 MILLIGRAM, ONCE A DAY (70 MILLIGRAM, BID)
     Route: 064
  7. PREDNISOLONE [Concomitant]
     Active Substance: PREDNISOLONE
     Indication: Type IV hypersensitivity reaction
     Dosage: UNK
     Route: 064
  8. PREDNISOLONE [Concomitant]
     Active Substance: PREDNISOLONE
     Dosage: 20 MILLIGRAM
     Route: 064
  9. CALAMINE [Concomitant]
     Active Substance: CALAMINE\FERRIC OXIDE RED\ZINC OXIDE
     Indication: Symptomatic treatment
     Dosage: UNK
     Route: 064

REACTIONS (3)
  - Nonreassuring foetal heart rate pattern [Unknown]
  - Maternal exposure during pregnancy [Unknown]
  - Foetal monitoring abnormal [Unknown]
